FAERS Safety Report 17086591 (Version 1)
Quarter: 2019Q4

REPORT INFORMATION
  Report Type: Spontaneous
  Country: US (occurrence: US)
  Receive Date: 20191128
  Receipt Date: 20191128
  Transmission Date: 20200122
  Serious: Yes (Other)
  Sender: FDA-Public Use
  Company Number: US-SA-2019SA321935

PATIENT
  Age: 57 Year
  Sex: Female

DRUGS (2)
  1. ELOXATIN [Suspect]
     Active Substance: OXALIPLATIN
     Indication: COLON CANCER
     Dosage: UNK UNK, Q3W
     Dates: start: 20191022
  2. ELOXATIN [Suspect]
     Active Substance: OXALIPLATIN
     Dosage: UNK UNK, Q3W
     Dates: start: 20191113

REACTIONS (5)
  - Chest discomfort [Not Recovered/Not Resolved]
  - Accidental exposure to product [Unknown]
  - Peripheral swelling [Recovering/Resolving]
  - Axillary pain [Not Recovered/Not Resolved]
  - Incorrect dose administered [Unknown]
